FAERS Safety Report 11573871 (Version 4)
Quarter: 2016Q1

REPORT INFORMATION
  Report Type: Spontaneous
  Country: US (occurrence: US)
  Receive Date: 20150929
  Receipt Date: 20160115
  Transmission Date: 20160525
  Serious: Yes (Death, Hospitalization, Other)
  Sender: FDA-Public Use
  Company Number: US-HOSPIRA-3012335

PATIENT
  Age: 22 Year
  Sex: Male
  Weight: 69 kg

DRUGS (68)
  1. CEFEPIME [Concomitant]
     Active Substance: CEFEPIME HYDROCHLORIDE
     Indication: FEBRILE NEUTROPENIA
     Dates: start: 20141104, end: 20141121
  2. ACETAMINOPHEN. [Concomitant]
     Active Substance: ACETAMINOPHEN
     Indication: FEBRILE NEUTROPENIA
     Dates: start: 20141103, end: 20150116
  3. DILAUDID [Concomitant]
     Active Substance: HYDROMORPHONE HYDROCHLORIDE
     Indication: ABDOMINAL PAIN
     Dates: start: 20141104, end: 20141230
  4. FLAGYL [Concomitant]
     Active Substance: METRONIDAZOLE\METRONIDAZOLE HYDROCHLORIDE
     Indication: DIARRHOEA
     Dates: start: 20141118, end: 20141230
  5. CYTARABINE. [Suspect]
     Active Substance: CYTARABINE
     Indication: ACUTE LYMPHOCYTIC LEUKAEMIA
     Dosage: DAYS 1-7
     Route: 042
     Dates: start: 20141110, end: 20141117
  6. DOPAMINE [Concomitant]
     Active Substance: DOPAMINE\DOPAMINE HYDROCHLORIDE
     Indication: SEPTIC SHOCK
     Dosage: ONCE
     Route: 042
     Dates: start: 20141122, end: 20141122
  7. MITOXANTRONE [Suspect]
     Active Substance: MITOXANTRONE HYDROCHLORIDE
     Indication: ACUTE LYMPHOCYTIC LEUKAEMIA
     Dosage: DAYS 1-3
     Route: 042
     Dates: start: 20141110, end: 20141112
  8. ACYCLOVIR                          /00587301/ [Concomitant]
     Active Substance: ACYCLOVIR
     Indication: PROPHYLAXIS
     Route: 048
     Dates: start: 20141128, end: 20141130
  9. VORICONAZOLE. [Concomitant]
     Active Substance: VORICONAZOLE
     Indication: PYREXIA
     Dates: start: 20141127, end: 20141204
  10. WHITE PETROLATUM [Concomitant]
     Active Substance: PETROLATUM
     Indication: DRY EYE
     Dates: start: 20141123, end: 20150117
  11. HEPARIN [Concomitant]
     Active Substance: HEPARIN SODIUM
     Indication: THROMBOSIS PROPHYLAXIS
     Dates: start: 20141123, end: 20150117
  12. DEXAMETHASONE. [Concomitant]
     Active Substance: DEXAMETHASONE
     Indication: HEADACHE
     Dates: start: 20141110, end: 20141223
  13. CAFFEINE. [Concomitant]
     Active Substance: CAFFEINE
     Indication: HEADACHE
     Dates: start: 20141115, end: 20141125
  14. DIPHENHYDRAMINE. [Concomitant]
     Active Substance: DIPHENHYDRAMINE
     Indication: PRURITUS
     Dates: start: 20141115, end: 20141220
  15. ACETAMINOPHEN. [Concomitant]
     Active Substance: ACETAMINOPHEN
     Indication: PYREXIA
     Dates: start: 20141115, end: 20141123
  16. FIORICET [Concomitant]
     Active Substance: ACETAMINOPHEN\BUTALBITAL\CAFFEINE
     Indication: HEADACHE
     Dates: start: 20141116, end: 20141219
  17. POTASSIUM PHOSPHATE                /00493501/ [Concomitant]
     Indication: HYPOKALAEMIA
     Dates: start: 20141122, end: 20141216
  18. MEROPENEM. [Concomitant]
     Active Substance: MEROPENEM
     Indication: SEPTIC SHOCK
     Route: 042
     Dates: start: 20141122, end: 20141204
  19. FENTANYL. [Concomitant]
     Active Substance: FENTANYL
     Indication: BIOPSY
     Dates: start: 20141122, end: 20141122
  20. LIDOCAINE. [Concomitant]
     Active Substance: LIDOCAINE
     Indication: CENTRAL VENOUS CATHETERISATION
     Dates: start: 20141104, end: 20141126
  21. ALLOPURINOL. [Concomitant]
     Active Substance: ALLOPURINOL
     Indication: BLOOD URIC ACID
     Dates: start: 20141104, end: 20141208
  22. METHOTREXATE [Suspect]
     Active Substance: METHOTREXATE
     Indication: PROPHYLAXIS
     Dosage: WEEKLY
     Route: 037
     Dates: start: 20141112, end: 20141130
  23. METRONIDAZOLE. [Concomitant]
     Active Substance: METRONIDAZOLE
     Indication: FEBRILE NEUTROPENIA
     Route: 042
     Dates: start: 20141203, end: 20141205
  24. POTASSIUM CHLORIDE. [Concomitant]
     Active Substance: POTASSIUM CHLORIDE
     Indication: HYPOKALAEMIA
     Dates: start: 20141122, end: 20150117
  25. VANCOMYCIN [Concomitant]
     Active Substance: VANCOMYCIN
     Indication: SEPTIC SHOCK
     Route: 048
     Dates: start: 20141123, end: 20141204
  26. DOCUSATE [Concomitant]
     Active Substance: DOCUSATE
     Indication: CONSTIPATION
     Dates: start: 20141103, end: 20141230
  27. PANTOPRAZOLE [Concomitant]
     Active Substance: PANTOPRAZOLE SODIUM
     Indication: ABDOMINAL PAIN
     Dates: start: 20141104, end: 20141119
  28. HYDROXYZINE [Concomitant]
     Active Substance: HYDROXYZINE\HYDROXYZINE HYDROCHLORIDE
     Indication: RASH
     Dates: start: 20141119, end: 20141203
  29. OXYCODONE [Concomitant]
     Active Substance: OXYCODONE
     Indication: PAIN
     Dates: start: 20141105, end: 20150113
  30. OXYGEN. [Concomitant]
     Active Substance: OXYGEN
     Indication: RESPIRATORY DISTRESS
     Route: 045
     Dates: start: 20141122, end: 20141125
  31. FUROSEMIDE. [Concomitant]
     Active Substance: FUROSEMIDE
     Indication: URINE OUTPUT
     Dates: start: 20141130, end: 20141223
  32. VASOPRESSIN. [Concomitant]
     Active Substance: VASOPRESSIN
     Indication: SEPTIC SHOCK
     Dates: start: 20141122, end: 20141123
  33. CASPOFUNGIN [Concomitant]
     Active Substance: CASPOFUNGIN
     Indication: SEPTIC SHOCK
     Dosage: ONCE
     Route: 042
     Dates: start: 20141123
  34. VANCOMYCIN [Concomitant]
     Active Substance: VANCOMYCIN
     Indication: SEPTIC SHOCK
     Route: 048
     Dates: start: 20141122, end: 20141123
  35. NOREPINEPHRINE [Concomitant]
     Active Substance: NOREPINEPHRINE\NOREPINEPHRINE BITARTRATE
     Indication: SEPTIC SHOCK
     Dates: start: 20141122, end: 20141231
  36. METOCLOPRAMIDE. [Concomitant]
     Active Substance: METOCLOPRAMIDE
     Indication: CONSTIPATION
     Dates: start: 20141112, end: 20141122
  37. VITAMIN K [Concomitant]
     Active Substance: PHYTONADIONE
     Indication: COAGULOPATHY
     Dates: start: 20141124, end: 20141226
  38. POLYETHYLENE GLYCOL [Concomitant]
     Active Substance: POLYETHYLENE GLYCOLS
     Indication: CONSTIPATION
     Dates: start: 20141103, end: 20141230
  39. SODIUM PHOSPHATE [Concomitant]
     Active Substance: SODIUM PHOSPHATE
     Indication: HYPONATRAEMIA
     Route: 042
     Dates: start: 20141124, end: 20141216
  40. ZOFRAN [Concomitant]
     Active Substance: ONDANSETRON HYDROCHLORIDE
     Indication: NAUSEA
     Dates: start: 20141103, end: 20150102
  41. HYDROCORTISONE. [Concomitant]
     Active Substance: HYDROCORTISONE
     Indication: PREMEDICATION
     Dosage: DAILY
     Route: 042
     Dates: start: 20141122, end: 20141128
  42. ACYCLOVIR                          /00587301/ [Concomitant]
     Active Substance: ACYCLOVIR
     Indication: PYREXIA
     Dates: start: 20141126, end: 20141209
  43. FILGRASTIM [Concomitant]
     Active Substance: FILGRASTIM
     Indication: NEUTROPENIA
     Dates: start: 20141125, end: 20141212
  44. NALOXONE [Concomitant]
     Active Substance: NALOXONE
     Indication: ABDOMINAL PAIN
     Dates: start: 20141125, end: 20150101
  45. CALCIUM ACETATE. [Concomitant]
     Active Substance: CALCIUM ACETATE
     Indication: TRANSFUSION
     Dates: start: 20141118, end: 20141120
  46. CETIRIZINE [Concomitant]
     Active Substance: CETIRIZINE HYDROCHLORIDE
     Indication: PYREXIA
     Dates: start: 20141111, end: 20141209
  47. DEXAMETHASONE. [Concomitant]
     Active Substance: DEXAMETHASONE
     Indication: NAUSEA
     Dates: start: 20141110, end: 20141223
  48. ZOSYN [Concomitant]
     Active Substance: PIPERACILLIN SODIUM\TAZOBACTAM SODIUM
     Indication: PYREXIA
     Dates: start: 20141118, end: 20141219
  49. HYDROCORTISONE. [Concomitant]
     Active Substance: HYDROCORTISONE
     Indication: SEPTIC SHOCK
     Dates: start: 20141122, end: 20141228
  50. LACTATED RINGERS [Concomitant]
     Active Substance: CALCIUM CHLORIDE\POTASSIUM CHLORIDE\SODIUM CHLORIDE\SODIUM LACTATE
     Indication: SEPTIC SHOCK
     Route: 040
     Dates: start: 20141122
  51. FLUCONAZOLE. [Concomitant]
     Active Substance: FLUCONAZOLE
     Indication: SEPTIC SHOCK
     Dates: start: 20141125, end: 20141127
  52. CHLORHEXIDINE [Concomitant]
     Active Substance: CHLORHEXIDINE
     Indication: FEBRILE NEUTROPENIA
     Dates: start: 20141122, end: 20141203
  53. TRIAMCINOLONE ACETONIDE. [Concomitant]
     Active Substance: TRIAMCINOLONE ACETONIDE
     Indication: RASH
     Dates: start: 20141116, end: 20150115
  54. ZOFRAN [Concomitant]
     Active Substance: ONDANSETRON HYDROCHLORIDE
     Indication: PROPHYLAXIS
     Dates: start: 20141103, end: 20150102
  55. VASOPRESSIN. [Concomitant]
     Active Substance: VASOPRESSIN
     Indication: SEPTIC SHOCK
     Route: 042
     Dates: start: 20141122, end: 20141122
  56. PHENYLEPHRINE [Concomitant]
     Active Substance: PHENYLEPHRINE\PHENYLEPHRINE HYDROCHLORIDE
     Indication: SEPTIC SHOCK
     Route: 042
     Dates: start: 20141122, end: 20141123
  57. CASPOFUNGIN [Concomitant]
     Active Substance: CASPOFUNGIN
     Indication: PYREXIA
     Dates: start: 20141123, end: 20141209
  58. VANCOMYCIN [Concomitant]
     Active Substance: VANCOMYCIN
     Indication: DIARRHOEA
     Dates: start: 20141122, end: 20150110
  59. LACTATED RINGERS [Concomitant]
     Active Substance: CALCIUM CHLORIDE\POTASSIUM CHLORIDE\SODIUM CHLORIDE\SODIUM LACTATE
     Indication: SEPTIC SHOCK
     Route: 040
     Dates: start: 20141123, end: 20141230
  60. FAMOTIDINE. [Concomitant]
     Active Substance: FAMOTIDINE
     Indication: ABDOMINAL PAIN
     Dates: start: 20141119, end: 20150103
  61. EPINEPHRINE. [Concomitant]
     Active Substance: EPINEPHRINE
     Indication: SEPTIC SHOCK
     Dates: start: 20141122, end: 20141124
  62. PROCHLORPERAZINE. [Concomitant]
     Active Substance: PROCHLORPERAZINE
     Indication: CONSTIPATION
     Dates: start: 20141112, end: 20141230
  63. SENOKOT [Concomitant]
     Active Substance: SENNOSIDES
     Indication: CONSTIPATION
     Dates: start: 20141120, end: 20150103
  64. POTASSIUM PHOSPHATE                /00493501/ [Concomitant]
     Indication: ELECTROLYTE SUBSTITUTION THERAPY
     Dosage: DAILY
     Route: 042
     Dates: start: 20141122, end: 20141207
  65. POTASSIUM CHLORIDE. [Concomitant]
     Active Substance: POTASSIUM CHLORIDE
     Indication: ELECTROLYTE SUBSTITUTION THERAPY
     Dosage: DAILY
     Route: 042
     Dates: start: 20141122, end: 20141204
  66. LORAZEPAM. [Concomitant]
     Active Substance: LORAZEPAM
     Indication: BIOPSY
     Dates: start: 20141112, end: 20141230
  67. VORICONAZOLE. [Concomitant]
     Active Substance: VORICONAZOLE
     Indication: PLEURAL EFFUSION
     Dates: start: 20141127, end: 20141204
  68. MAGNESIUM SULFATE. [Concomitant]
     Active Substance: MAGNESIUM SULFATE
     Indication: HYPOMAGNESAEMIA
     Route: 042
     Dates: start: 20141122, end: 20150117

REACTIONS (7)
  - Septic shock [Recovered/Resolved]
  - Constipation [Unknown]
  - Clostridium difficile colitis [Recovered/Resolved]
  - Leukoencephalopathy [Recovered/Resolved with Sequelae]
  - Disease progression [Fatal]
  - Cerebrovascular accident [Recovered/Resolved with Sequelae]
  - Lip swelling [Unknown]

NARRATIVE: CASE EVENT DATE: 20141122
